FAERS Safety Report 5683227-0 (Version None)
Quarter: 2008Q1

REPORT INFORMATION
  Report Type: 
  Country: None (occurrence: None)
  Receive Date: 20080327
  Receipt Date: 20080324
  Transmission Date: 20080703
  Serious: Yes (Death, Hospitalization)
  Sender: FDA-Public Use
  Company Number: US-GILEAD-2008-0015851

PATIENT
  Age: 61 Year
  Sex: Male

DRUGS (2)
  1. LETAIRIS [Suspect]
  2. REMODULIN [Concomitant]

REACTIONS (2)
  - CHEST PAIN [None]
  - DEATH [None]
